FAERS Safety Report 4544482-3 (Version None)
Quarter: 2004Q4

REPORT INFORMATION
  Report Type: 
  Country: None (occurrence: None)
  Receive Date: 20041229
  Receipt Date: 20041214
  Transmission Date: 20050328
  Serious: Yes (Hospitalization)
  Sender: FDA-Public Use
  Company Number: WSDF_00458

PATIENT
  Age: 32 Year
  Sex: Female

DRUGS (1)
  1. WINRHO SDF [Suspect]
     Indication: ANTIPHOSPHOLIPID SYNDROME
     Dates: start: 20041130, end: 20041130

REACTIONS (13)
  - ANAEMIA [None]
  - BLOOD PRESSURE DECREASED [None]
  - CARDIAC ENZYMES INCREASED [None]
  - CHROMATURIA [None]
  - CONDITION AGGRAVATED [None]
  - HEADACHE [None]
  - HEPATIC ENZYME INCREASED [None]
  - INTRAVASCULAR HAEMOLYSIS [None]
  - JAUNDICE [None]
  - PLATELET COUNT DECREASED [None]
  - RENAL FUNCTION TEST ABNORMAL [None]
  - TREMOR [None]
  - VOMITING [None]
